FAERS Safety Report 6121169-7 (Version None)
Quarter: 2009Q1

REPORT INFORMATION
  Report Type: 
  Country: None (occurrence: None)
  Receive Date: 20090317
  Receipt Date: 20090313
  Transmission Date: 20090719
  Serious: Yes (Hospitalization)
  Sender: FDA-Public Use
  Company Number: B0564766A

PATIENT
  Age: 81 Year
  Sex: Male

DRUGS (5)
  1. AUGMENTIN '125' [Suspect]
     Indication: BRONCHITIS
     Route: 048
     Dates: start: 20090101, end: 20090108
  2. PREVISCAN [Suspect]
     Dosage: 20MG PER DAY
     Route: 048
  3. CORDARONE [Concomitant]
     Route: 065
  4. PRAVASTATIN [Concomitant]
     Route: 065
  5. TAMSULOSINE [Concomitant]
     Route: 065

REACTIONS (3)
  - DRUG INTERACTION [None]
  - INTERNATIONAL NORMALISED RATIO INCREASED [None]
  - OVERDOSE [None]
